APPROVED DRUG PRODUCT: CEFOXITIN
Active Ingredient: CEFOXITIN SODIUM
Strength: EQ 2GM BASE/VIAL **Federal Register determination that product was not discontinued or withdrawn for safety or effectiveness reasons**
Dosage Form/Route: INJECTABLE;INJECTION
Application: A065012 | Product #002
Applicant: FRESENIUS KABI USA LLC
Approved: Jul 3, 2000 | RLD: No | RS: No | Type: DISCN